FAERS Safety Report 7403140-8 (Version None)
Quarter: 2011Q2

REPORT INFORMATION
  Report Type: 
  Country: None (occurrence: None)
  Receive Date: 20110408
  Receipt Date: 20080922
  Transmission Date: 20111010
  Serious: No
  Sender: FDA-Public Use
  Company Number: US-MYLANLABS-2008S1015786

PATIENT
  Age: 42 Year
  Sex: Female
  Weight: 62.6 kg

DRUGS (9)
  1. AMBIEN [Concomitant]
  2. PROMETRIUM [Concomitant]
  3. VALTREX [Concomitant]
     Route: 048
  4. MIRTAZAPINE [Suspect]
     Indication: INSOMNIA
     Route: 048
     Dates: start: 20080724, end: 20080830
  5. LEVOTHYROXINE [Concomitant]
     Route: 048
  6. DOXYCYCLINE [Concomitant]
     Route: 048
  7. FLEXERIL [Concomitant]
     Dates: start: 20050101
  8. FINACEA [Concomitant]
  9. MIRTAZAPINE [Suspect]
     Indication: DEPRESSION
     Route: 048
     Dates: start: 20080724, end: 20080830

REACTIONS (1)
  - MENORRHAGIA [None]
